FAERS Safety Report 6112469-5 (Version None)
Quarter: 2009Q1

REPORT INFORMATION
  Report Type: 
  Country: None (occurrence: None)
  Receive Date: 20090312
  Receipt Date: 20090309
  Transmission Date: 20090719
  Serious: No
  Sender: FDA-Public Use
  Company Number: US-JNJFOC-20090302329

PATIENT
  Sex: Female
  Weight: 97.52 kg

DRUGS (4)
  1. DURAGESIC-100 [Suspect]
     Indication: BONE PAIN
     Route: 062
  2. LISINOPRIL [Concomitant]
     Indication: HYPERTENSION
     Route: 048
  3. ROXICET [Concomitant]
     Indication: BREAKTHROUGH PAIN
     Dosage: U-325 MG AS NEEDED
     Route: 048
  4. ASPIRIN [Concomitant]
     Indication: ANTICOAGULANT THERAPY
     Route: 048

REACTIONS (2)
  - DRUG DOSE OMISSION [None]
  - INCORRECT DRUG ADMINISTRATION DURATION [None]
